FAERS Safety Report 9216874 (Version 2)
Quarter: 2013Q2

REPORT INFORMATION
  Report Type: Spontaneous
  Country: US (occurrence: US)
  Receive Date: 20130408
  Receipt Date: 20130430
  Transmission Date: 20140414
  Serious: Yes (Hospitalization)
  Sender: FDA-Public Use
  Company Number: US-PFIZER INC-2013106082

PATIENT
  Age: 61 Year
  Sex: Male

DRUGS (4)
  1. SUTENT [Suspect]
     Indication: GASTROINTESTINAL STROMAL CANCER
     Dosage: 50 MG, CYCLIC
     Route: 048
     Dates: start: 20120418, end: 20120516
  2. SUTENT [Suspect]
     Dosage: 50 MG, CYCLIC
     Route: 048
     Dates: start: 20120530, end: 20120608
  3. GLEEVEC [Suspect]
     Dosage: 600 MG, 1X/DAY (DAILY)
     Route: 048
     Dates: end: 20120818
  4. BENICAR HCT [Concomitant]
     Indication: HYPERTENSION
     Dosage: 20/12.5 MG, UNK
     Dates: start: 20120530

REACTIONS (2)
  - Encephalopathy [Recovered/Resolved]
  - Hypertension [Unknown]
